FAERS Safety Report 6413517-5 (Version None)
Quarter: 2009Q4

REPORT INFORMATION
  Report Type: 
  Country: None (occurrence: None)
  Receive Date: 20091020
  Receipt Date: 20091009
  Transmission Date: 20100525
  Serious: Yes (Hospitalization)
  Sender: FDA-Public Use
  Company Number: GXKR2009IL11160

PATIENT
  Age: 42 Year
  Sex: Female

DRUGS (3)
  1. VENLAFAXINE HCL [Suspect]
     Indication: ANXIETY
  2. METOCLOPRAMIDE [Suspect]
     Indication: VOMITING
     Dosage: INTRAVENOUS
     Route: 042
  3. TAMOXIFEN CITRATE [Concomitant]

REACTIONS (1)
  - SEROTONIN SYNDROME [None]
